FAERS Safety Report 10042621 (Version 1)
Quarter: 2014Q1

REPORT INFORMATION
  Report Type: Report from Study
  Country: DE (occurrence: DE)
  Receive Date: 20140327
  Receipt Date: 20140327
  Transmission Date: 20141002
  Serious: Yes (Other)
  Sender: FDA-Public Use
  Company Number: PHHY2014DE037012

PATIENT
  Sex: Male
  Weight: 84 kg

DRUGS (2)
  1. GLYCOPYRRONIUM BROMIDE [Suspect]
  2. ULTIBRO BREEZHALER [Suspect]
     Indication: CHRONIC OBSTRUCTIVE PULMONARY DISEASE
     Dosage: 1 DF, QD
     Route: 055
     Dates: start: 20140124

REACTIONS (2)
  - Pneumonia [Recovered/Resolved]
  - Lung infiltration [Recovered/Resolved]
